FAERS Safety Report 20882147 (Version 1)
Quarter: 2022Q2

REPORT INFORMATION
  Report Type: Report from Study
  Country: JP (occurrence: JP)
  Receive Date: 20220527
  Receipt Date: 20220527
  Transmission Date: 20220720
  Serious: Yes (Other)
  Sender: FDA-Public Use
  Company Number: JP-RECORDATI RARE DISEASE INC.-2022000342

PATIENT
  Age: 5 Day
  Sex: Male
  Weight: .706 kg

DRUGS (15)
  1. NEOPROFEN [Suspect]
     Active Substance: IBUPROFEN LYSINE
     Indication: Patent ductus arteriosus
     Dosage: 7 MILLIGRAM
     Route: 042
     Dates: start: 20210811, end: 20210811
  2. NEOPROFEN [Suspect]
     Active Substance: IBUPROFEN LYSINE
     Dosage: 8 MILLIGRAM
     Route: 042
     Dates: start: 20210826, end: 20210826
  3. CAFFEINE [Concomitant]
     Active Substance: CAFFEINE
     Indication: Apnoeic attack
     Dosage: UNK
     Route: 042
     Dates: start: 20210807, end: 20210816
  4. SODIUM CHLORIDE [Concomitant]
     Active Substance: SODIUM CHLORIDE
     Indication: Prophylaxis
     Dosage: UNK
     Route: 042
     Dates: start: 20210820, end: 20210923
  5. SODIUM CHLORIDE [Concomitant]
     Active Substance: SODIUM CHLORIDE
     Indication: Mineral deficiency
  6. DOPAMINE [Concomitant]
     Active Substance: DOPAMINE HYDROCHLORIDE
     Indication: Renal disorder
     Dosage: UNK
     Route: 042
     Dates: start: 20210812, end: 20210830
  7. DOPAMINE [Concomitant]
     Active Substance: DOPAMINE HYDROCHLORIDE
     Indication: Urine output decreased
  8. DOBUTAMINE [Concomitant]
     Active Substance: DOBUTAMINE HYDROCHLORIDE
     Indication: Renal disorder
     Dosage: UNK
     Route: 042
     Dates: start: 20210812, end: 20210830
  9. DOBUTAMINE [Concomitant]
     Active Substance: DOBUTAMINE HYDROCHLORIDE
     Indication: Urine output decreased
  10. FERRIC PYROPHOSPHATE [Concomitant]
     Active Substance: FERRIC PYROPHOSPHATE
     Indication: Anaemia neonatal
     Dosage: UNK
     Route: 048
     Dates: start: 20210817, end: 20211122
  11. FUROSEMIDE [Concomitant]
     Active Substance: FUROSEMIDE
     Indication: Pulmonary oedema
     Dosage: UNK
     Route: 048
     Dates: start: 20210817, end: 20210819
  12. SURFACTANT, BOVINE LUNG [Concomitant]
     Indication: Chronic respiratory disease
     Dosage: UNK
     Route: 039
     Dates: start: 20210817, end: 20210819
  13. ALFAROL [Concomitant]
     Active Substance: ALFACALCIDOL
     Indication: Hypovitaminosis
     Dosage: UNK
     Route: 048
     Dates: start: 20210820, end: 20210828
  14. ALFAROL [Concomitant]
     Active Substance: ALFACALCIDOL
     Indication: Prophylaxis
  15. ERYTHROPOIETIN [Concomitant]
     Active Substance: ERYTHROPOIETIN
     Indication: Anaemia neonatal
     Dosage: UNK
     Route: 058
     Dates: start: 20210816, end: 20210826

REACTIONS (3)
  - Pulmonary oedema [Recovering/Resolving]
  - Renal disorder [Recovered/Resolved]
  - Bronchopulmonary dysplasia [Recovering/Resolving]

NARRATIVE: CASE EVENT DATE: 20210812
